FAERS Safety Report 6976777-8 (Version None)
Quarter: 2010Q3

REPORT INFORMATION
  Report Type: 
  Country: None (occurrence: None)
  Receive Date: 20100910
  Receipt Date: 20090504
  Transmission Date: 20110219
  Serious: No
  Sender: FDA-Public Use
  Company Number: US-WYE-H09224509

PATIENT
  Sex: Female

DRUGS (5)
  1. PRISTIQ [Suspect]
     Indication: DEPRESSION
     Route: 048
     Dates: start: 20090425
  2. CALCIUM [Concomitant]
  3. KLONOPIN [Concomitant]
  4. LIPITOR [Concomitant]
  5. PROTONIX [Concomitant]

REACTIONS (5)
  - ABDOMINAL DISCOMFORT [None]
  - CRYING [None]
  - DECREASED APPETITE [None]
  - DRUG INEFFECTIVE [None]
  - NIGHT SWEATS [None]
